FAERS Safety Report 10250296 (Version 1)
Quarter: 2014Q2

REPORT INFORMATION
  Report Type: Spontaneous
  Country: US (occurrence: US)
  Receive Date: 20140620
  Receipt Date: 20140620
  Transmission Date: 20141212
  Serious: No
  Sender: FDA-Public Use
  Company Number: US-PFIZER INC-2014166536

PATIENT
  Age: 80 Year
  Sex: Male
  Weight: 120.18 kg

DRUGS (5)
  1. CELEBREX [Suspect]
     Indication: ARTHRITIS
     Dosage: 200 MG, 1X/DAY
     Route: 048
     Dates: start: 20140605
  2. METFORMIN [Concomitant]
     Dosage: 500 MG, 1X/DAY
  3. LOSARTAN [Concomitant]
     Dosage: 25 MG, 1X/DAY
  4. LEVOTHYROXINE [Concomitant]
     Dosage: 112 UG, 1X/DAY
  5. ASPIRIN [Concomitant]
     Dosage: 81 MG, 1X/DAY

REACTIONS (4)
  - Anaemia [Unknown]
  - Chromaturia [Unknown]
  - Faeces discoloured [Unknown]
  - Contusion [Unknown]
